FAERS Safety Report 6714860-2 (Version None)
Quarter: 2010Q2

REPORT INFORMATION
  Report Type: 
  Country: None (occurrence: None)
  Receive Date: 20100506
  Receipt Date: 20100506
  Transmission Date: 20101027
  Serious: Yes (Life-Threatening, Other)
  Sender: FDA-Public Use
  Company Number: None

PATIENT
  Age: 6 Year
  Sex: Male
  Weight: 19.9583 kg

DRUGS (2)
  1. CHILDRENS TYLENOL SUSPENSION, CH 80 MG/1/2 TSP MCNEIL [Suspect]
     Indication: MYALGIA
     Dosage: 5-10 ML PO
     Route: 048
     Dates: start: 20100301, end: 20100503
  2. CHILDRENS TYLENOL PLUS COUGH+RNY 160 MG/5ML MCNEIL [Suspect]
     Indication: NASOPHARYNGITIS
     Dosage: 5-10 ML PO
     Route: 048
     Dates: start: 20100301, end: 20100420

REACTIONS (3)
  - BURKHOLDERIA CEPACIA COMPLEX INFECTION [None]
  - COUGH [None]
  - PRODUCT QUALITY ISSUE [None]
